FAERS Safety Report 26158916 (Version 1)
Quarter: 2025Q4

REPORT INFORMATION
  Report Type: Spontaneous
  Country: US (occurrence: US)
  Receive Date: 20251215
  Receipt Date: 20251215
  Transmission Date: 20260117
  Serious: Yes (Other)
  Sender: AMGEN
  Company Number: US-AMGEN-USASP2025244327

PATIENT
  Sex: Male

DRUGS (3)
  1. XGEVA [Suspect]
     Active Substance: DENOSUMAB
     Indication: Prostate cancer metastatic
     Dosage: UNK
     Route: 065
     Dates: end: 20250919
  2. XGEVA [Suspect]
     Active Substance: DENOSUMAB
     Indication: Bone cancer metastatic
  3. ELIQUIS [Concomitant]
     Active Substance: APIXABAN
     Dosage: UNK UNK, Q3MO

REACTIONS (6)
  - Neoplasm malignant [Not Recovered/Not Resolved]
  - Bone pain [Not Recovered/Not Resolved]
  - Depression [Not Recovered/Not Resolved]
  - Nausea [Not Recovered/Not Resolved]
  - Toothache [Not Recovered/Not Resolved]
  - Laboratory test abnormal [Not Recovered/Not Resolved]
